FAERS Safety Report 8763264 (Version 1)
Quarter: 2012Q4

REPORT INFORMATION
  Report Type: 
  Country: US (occurrence: US)
  Receive Date: 20120831
  Receipt Date: 20120831
  Transmission Date: 20130627
  Serious: Yes (Hospitalization)
  Sender: FDA-Public Use
  Company Number: US-BAYER-2012-087910

PATIENT
  Age: 25 Year
  Sex: Female

DRUGS (3)
  1. YASMIN [Suspect]
  2. SPIRONOLACTONE [Concomitant]
  3. MULTIVITAMIN [Concomitant]

REACTIONS (1)
  - Pulmonary embolism [None]
